FAERS Safety Report 20895025 (Version 1)
Quarter: 2022Q2

REPORT INFORMATION
  Report Type: Report from Study
  Country: US (occurrence: US)
  Receive Date: 20220531
  Receipt Date: 20220531
  Transmission Date: 20220721
  Serious: Yes (Congenital Anomaly, Other)
  Sender: FDA-Public Use
  Company Number: US-ViiV Healthcare Limited-US2022GSK086100

PATIENT

DRUGS (3)
  1. LAMIVUDINE AND ZIDOVUDINE [Suspect]
     Active Substance: LAMIVUDINE\ZIDOVUDINE
     Indication: HIV infection
     Dosage: 2 DF(TABS/CAPS), QD
     Route: 064
     Dates: start: 20130301, end: 20130305
  2. ABACAVIR SULFATE\LAMIVUDINE\ZIDOVUDINE [Suspect]
     Active Substance: ABACAVIR SULFATE\LAMIVUDINE\ZIDOVUDINE
     Indication: HIV infection
     Dosage: 2 DF (TAB/CAPS), QD
     Route: 064
     Dates: start: 20130328
  3. LOPINAVIR\RITONAVIR [Suspect]
     Active Substance: LOPINAVIR\RITONAVIR
     Indication: HIV infection
     Dosage: 4 DF (TAB/CAPS), QD
     Route: 064
     Dates: start: 20130301, end: 20130305

REACTIONS (2)
  - Congenital pyelocaliectasis [Recovered/Resolved]
  - Foetal exposure during pregnancy [Unknown]
